FAERS Safety Report 4814800-7 (Version None)
Quarter: 2005Q4

REPORT INFORMATION
  Report Type: 
  Country: None (occurrence: None)
  Receive Date: 20051028
  Receipt Date: 20050103
  Transmission Date: 20060501
  Serious: No
  Sender: FDA-Public Use
  Company Number: US-GLAXOSMITHKLINE-A0539061A

PATIENT
  Age: 57 Year
  Sex: Female

DRUGS (7)
  1. ADVAIR DISKUS 100/50 [Suspect]
     Indication: ASTHMA
     Dosage: 1PUFF TWICE PER DAY
     Route: 055
  2. ACCOLATE [Concomitant]
  3. ALBUTEROL [Concomitant]
  4. THEO-DUR [Concomitant]
  5. LIPITOR [Concomitant]
  6. BLOOD PRESSURE MEDICATION [Concomitant]
  7. METFORMIN HCL [Concomitant]

REACTIONS (1)
  - DYSPNOEA [None]
